FAERS Safety Report 24010054 (Version 1)
Quarter: 2024Q2

REPORT INFORMATION
  Report Type: Spontaneous
  Country: US (occurrence: None)
  Receive Date: 20240624
  Receipt Date: 20240624
  Transmission Date: 20240715
  Serious: Yes (Other)
  Sender: FDA-Public Use
  Company Number: None

PATIENT
  Age: 34 Year
  Sex: Female
  Weight: 107 kg

DRUGS (4)
  1. EXTRANEAL [Suspect]
     Active Substance: CALCIUM CHLORIDE\ICODEXTRIN\MAGNESIUM CHLORIDE\SODIUM CHLORIDE\SODIUM LACTATE
     Indication: End stage renal disease
     Dosage: OTHER FREQUENCY : EVERY TREATMENT;?
     Route: 033
     Dates: start: 20240523, end: 20240612
  2. Liberty Cycler Peritoneal Dialysis Machine [Concomitant]
  3. Stay Safe Transfer Set [Concomitant]
  4. HEPARIN [Concomitant]
     Active Substance: HEPARIN SODIUM

REACTIONS (5)
  - Dialysis [None]
  - Dry skin [None]
  - Rash pruritic [None]
  - Skin exfoliation [None]
  - Drug hypersensitivity [None]

NARRATIVE: CASE EVENT DATE: 20240605
